FAERS Safety Report 4490697-2 (Version None)
Quarter: 2004Q4

REPORT INFORMATION
  Report Type: 
  Country: None (occurrence: None)
  Receive Date: 20041102
  Receipt Date: 20030820
  Transmission Date: 20050328
  Serious: Yes (Hospitalization)
  Sender: FDA-Public Use
  Company Number: GB-ROCHE-345073

PATIENT
  Age: 44 Year
  Sex: Female
  Weight: 61.1 kg

DRUGS (3)
  1. RIBAVIRIN [Suspect]
     Dosage: 400 MG TAKEN AM AND 600 MG TAKEN PM.
     Route: 048
     Dates: start: 20030430, end: 20030512
  2. RIBAVIRIN [Suspect]
     Route: 048
     Dates: start: 20030513, end: 20030715
  3. PEG-INTERFERON ALFA 2A (RO 25-8310) [Suspect]
     Route: 058
     Dates: start: 20030430

REACTIONS (4)
  - BLOOD SODIUM DECREASED [None]
  - DEHYDRATION [None]
  - HAEMOGLOBIN DECREASED [None]
  - NEUTROPHIL COUNT DECREASED [None]
